FAERS Safety Report 10008843 (Version 2)
Quarter: 2014Q2

REPORT INFORMATION
  Report Type: Report from Study
  Country: CA (occurrence: CA)
  Receive Date: 20140313
  Receipt Date: 20140424
  Transmission Date: 20141212
  Serious: Yes (Hospitalization, Other)
  Sender: FDA-Public Use
  Company Number: CA-UCBSA-114260

PATIENT
  Age: 0 Year
  Sex: Female
  Weight: 2.54 kg

DRUGS (5)
  1. CIMZIA [Suspect]
     Indication: RHEUMATOID ARTHRITIS
     Route: 064
     Dates: start: 20131220, end: 20140210
  2. CALCIUM [Concomitant]
     Indication: MINERAL SUPPLEMENTATION
     Dates: start: 201306, end: 20140210
  3. MATERNA [Concomitant]
     Indication: VITAMIN SUPPLEMENTATION
     Dosage: 1CO
     Dates: start: 201306, end: 20140210
  4. TYLENOL [Concomitant]
     Indication: PAIN
     Dosage: PRN
     Route: 064
  5. PREDNISONE [Concomitant]
     Indication: PAIN
     Route: 064
     Dates: start: 201310

REACTIONS (2)
  - Premature baby [Recovered/Resolved]
  - Foetal exposure during pregnancy [Recovered/Resolved]
